FAERS Safety Report 13401598 (Version 2)
Quarter: 2017Q2

REPORT INFORMATION
  Report Type: Report from Study
  Country: ZA (occurrence: ZA)
  Receive Date: 20170404
  Receipt Date: 20170406
  Transmission Date: 20170830
  Serious: Yes (Hospitalization)
  Sender: FDA-Public Use
  Company Number: ZA-PFIZER INC-2017141673

PATIENT
  Age: 76 Year
  Sex: Male

DRUGS (4)
  1. ADCO ZETOMAX CO [Suspect]
     Active Substance: HYDROCHLOROTHIAZIDE\LISINOPRIL
     Dosage: 5 MG, UNK
  2. PANTOPRAZOLE [Suspect]
     Active Substance: PANTOPRAZOLE
     Indication: GASTROOESOPHAGEAL REFLUX DISEASE
     Dosage: 40 MG, UNK
     Route: 065
  3. ALTOSEC /00661201/ [Suspect]
     Active Substance: OMEPRAZOLE
     Dosage: 20 MG, UNK
  4. UROMAX /00538902/ [Suspect]
     Active Substance: OXYBUTYNIN CHLORIDE
     Dosage: 0.4 MG, UNK

REACTIONS (2)
  - Skin ulcer [None]
  - Impaired healing [Unknown]
